FAERS Safety Report 8418136-7 (Version None)
Quarter: 2012Q2

REPORT INFORMATION
  Report Type: 
  Country: None (occurrence: None)
  Receive Date: 20120607
  Receipt Date: 20120525
  Transmission Date: 20120825
  Serious: Yes (Other)
  Sender: FDA-Public Use
  Company Number: BR-SANOFI-AVENTIS-2012SA037578

PATIENT
  Age: 54 Year
  Sex: Female
  Weight: 90 kg

DRUGS (12)
  1. OMEPRAZOLE [Concomitant]
     Route: 048
     Dates: start: 20120101
  2. LANTUS [Suspect]
     Route: 058
     Dates: start: 20020101
  3. AZOPT [Concomitant]
     Indication: EYE INFECTION
     Dosage: DOSE: 1 DROP IN EACH EYE
     Dates: start: 20120101
  4. NOVORAPID [Concomitant]
     Dosage: DOSE: ACCORDING TO GLYCEMIA
     Route: 058
  5. ALPRAZOLAM [Concomitant]
     Dosage: STRENGTH: 2 MG
     Route: 048
  6. OXCARBAZEPINE [Concomitant]
     Route: 048
     Dates: start: 20120101
  7. AUTOPEN 24 [Suspect]
     Indication: DEVICE THERAPY
     Dates: start: 20020101
  8. ATORVASTATIN CALCIUM [Concomitant]
     Route: 048
  9. FLUOXETINE [Concomitant]
     Indication: ANTIDEPRESSANT THERAPY
     Dosage: STRENGTH: 60 MG
     Route: 048
     Dates: start: 20120101
  10. JANUMET [Concomitant]
     Route: 048
     Dates: start: 20120101
  11. AMLODIPINE [Concomitant]
     Indication: BLOOD PRESSURE
     Route: 048
  12. ENALAPRIL MALEATE [Concomitant]
     Indication: BLOOD PRESSURE
     Dosage: STRENGTH: 20 MG
     Route: 048

REACTIONS (12)
  - VISUAL ACUITY REDUCED [None]
  - HYPOGLYCAEMIA [None]
  - FATIGUE [None]
  - GLAUCOMA [None]
  - DIABETIC NEUROPATHY [None]
  - PAIN IN EXTREMITY [None]
  - CONDITION AGGRAVATED [None]
  - CATARACT [None]
  - HYPERGLYCAEMIA [None]
  - WEIGHT INCREASED [None]
  - EUPHORIC MOOD [None]
  - SOMATOFORM DISORDER NEUROLOGIC [None]
